FAERS Safety Report 22059942 (Version 1)
Quarter: 2023Q1

REPORT INFORMATION
  Report Type: Spontaneous
  Country: GB (occurrence: GB)
  Receive Date: 20230303
  Receipt Date: 20230303
  Transmission Date: 20230418
  Serious: Yes (Other)
  Sender: FDA-Public Use
  Company Number: GB-MHRA-MED-202302231342457150-VGTYM

PATIENT
  Sex: Male

DRUGS (3)
  1. EFAVIRENZ [Interacting]
     Active Substance: EFAVIRENZ
     Indication: Product used for unknown indication
     Dosage: 600/200
     Route: 065
  2. TENOFOVIR DISOPROXIL [Interacting]
     Active Substance: TENOFOVIR DISOPROXIL
     Indication: Product used for unknown indication
     Dosage: 600/200
     Route: 065
  3. EMTRICITABINE [Interacting]
     Active Substance: EMTRICITABINE
     Indication: Product used for unknown indication
     Dosage: 600/200
     Route: 065

REACTIONS (3)
  - Depressed mood [Unknown]
  - Drug interaction [Unknown]
  - Anxiety [Unknown]
